FAERS Safety Report 17348755 (Version 1)
Quarter: 2020Q1

REPORT INFORMATION
  Report Type: Report from Study
  Country: US (occurrence: US)
  Receive Date: 20200129
  Receipt Date: 20200129
  Transmission Date: 20200409
  Serious: No
  Sender: FDA-Public Use
  Company Number: US-EXELIXIS-CABO-19024552

PATIENT
  Age: 62 Year
  Sex: Male

DRUGS (1)
  1. CABOMETYX [Suspect]
     Active Substance: CABOZANTINIB S-MALATE
     Indication: HEPATIC CANCER
     Dosage: 60 MG, QD
     Dates: start: 20190924, end: 20191113

REACTIONS (11)
  - Musculoskeletal stiffness [Recovered/Resolved]
  - Dyspnoea [Recovered/Resolved]
  - Asthenia [Not Recovered/Not Resolved]
  - Mouth ulceration [Recovered/Resolved]
  - Fatigue [Recovered/Resolved]
  - Oropharyngeal pain [Not Recovered/Not Resolved]
  - Hair colour changes [Unknown]
  - Sunburn [Recovered/Resolved]
  - Palmar-plantar erythrodysaesthesia syndrome [Recovering/Resolving]
  - Abdominal pain upper [Recovered/Resolved]
  - Blood pressure increased [Recovered/Resolved]

NARRATIVE: CASE EVENT DATE: 201909
